FAERS Safety Report 10064981 (Version 3)
Quarter: 2014Q2

REPORT INFORMATION
  Report Type: Spontaneous
  Country: US (occurrence: US)
  Receive Date: 20140408
  Receipt Date: 20140507
  Transmission Date: 20141212
  Serious: Yes (Other)
  Sender: FDA-Public Use
  Company Number: US-PFIZER INC-2014094617

PATIENT
  Age: 83 Year
  Sex: Female
  Weight: 64.4 kg

DRUGS (6)
  1. PROTONIX [Suspect]
     Indication: GASTROOESOPHAGEAL REFLUX DISEASE
     Dosage: 40 MG, 1X/DAY
     Route: 048
     Dates: start: 201304
  2. LIPITOR [Suspect]
     Indication: BLOOD CHOLESTEROL INCREASED
     Dosage: 40 MG, 1X/DAY
     Route: 048
  3. PREMARIN [Suspect]
     Indication: OESTROGEN DEFICIENCY
     Dosage: UNK, 2X/WEEK
     Route: 067
  4. GLUCOTROL [Suspect]
     Indication: DIABETES MELLITUS
     Dosage: 5 MG, 2X/DAY
     Route: 048
  5. WARFARIN [Suspect]
     Indication: COAGULATION FACTOR V LEVEL ABNORMAL
     Dosage: 7.5 MG, ONCE A WEEK AND REST OF THE DAYS 5MG ONCE A DAY
     Route: 048
     Dates: end: 2014
  6. LISINOPRIL [Concomitant]
     Indication: HYPERTENSION
     Dosage: UNK

REACTIONS (2)
  - Fall [Unknown]
  - Wrist fracture [Unknown]
